FAERS Safety Report 20603451 (Version 1)
Quarter: 2022Q1

REPORT INFORMATION
  Report Type: Spontaneous
  Country: US (occurrence: None)
  Receive Date: 20220316
  Receipt Date: 20220316
  Transmission Date: 20220424
  Serious: Yes (Hospitalization)
  Sender: FDA-Public Use
  Company Number: None

PATIENT
  Age: 78 Year
  Sex: Female
  Weight: 78.6 kg

DRUGS (2)
  1. CARBOPLATIN [Suspect]
     Active Substance: CARBOPLATIN
     Dates: end: 20220214
  2. TAXOL [Suspect]
     Active Substance: PACLITAXEL
     Dates: end: 20220214

REACTIONS (6)
  - Urinary tract infection [None]
  - Dehydration [None]
  - Nausea [None]
  - Dizziness [None]
  - Syncope [None]
  - Dialysis [None]

NARRATIVE: CASE EVENT DATE: 20220220
